FAERS Safety Report 5672841-4 (Version None)
Quarter: 2008Q1

REPORT INFORMATION
  Report Type: 
  Country: None (occurrence: None)
  Receive Date: 20080319
  Receipt Date: 20071203
  Transmission Date: 20080703
  Serious: No
  Sender: FDA-Public Use
  Company Number: US-KINGPHARMUSA00001-K200701558

PATIENT

DRUGS (3)
  1. ALTACE [Suspect]
     Indication: BLOOD PRESSURE MANAGEMENT
     Dosage: 10 MG, QD
     Route: 048
     Dates: start: 20061001, end: 20071121
  2. NORVASC /00972401/ [Concomitant]
     Indication: HYPERTENSION
     Dosage: 5 MG, QD
     Route: 048
     Dates: end: 20071121
  3. OPTINEL [Concomitant]
     Indication: OSTEOPOROSIS
     Dates: end: 20071101

REACTIONS (4)
  - AGEUSIA [None]
  - DYSGEUSIA [None]
  - FLUSHING [None]
  - SLEEP APNOEA SYNDROME [None]
